FAERS Safety Report 4852119-9 (Version None)
Quarter: 2005Q4

REPORT INFORMATION
  Report Type: 
  Country: None (occurrence: None)
  Receive Date: 20051209
  Receipt Date: 20051128
  Transmission Date: 20060501
  Serious: Yes (Other)
  Sender: FDA-Public Use
  Company Number: 2005161220

PATIENT
  Age: 63 Year
  Sex: Male
  Weight: 89 kg

DRUGS (3)
  1. LYRICA [Suspect]
     Indication: NEUROPATHY PERIPHERAL
     Dosage: (3 IN 1 D), ORAL
     Route: 048
     Dates: start: 20050906, end: 20051006
  2. GLYCERYL TRINITRATE (GLYCERYL TRINITRATE) [Concomitant]
  3. IBUPROFEN [Concomitant]

REACTIONS (2)
  - AGGRESSION [None]
  - CONFUSIONAL STATE [None]
